FAERS Safety Report 14485871 (Version 1)
Quarter: 2018Q1

REPORT INFORMATION
  Report Type: Spontaneous
  Country: JP (occurrence: JP)
  Receive Date: 20180205
  Receipt Date: 20180205
  Transmission Date: 20180509
  Serious: Yes (Other)
  Sender: FDA-Public Use
  Company Number: JP-PFIZER INC-2018045706

PATIENT

DRUGS (3)
  1. INLYTA [Suspect]
     Active Substance: AXITINIB
     Indication: RENAL CELL CARCINOMA
     Dosage: 10 MG, UNK
  2. INLYTA [Suspect]
     Active Substance: AXITINIB
     Dosage: 6 MG, UNK
  3. INLYTA [Suspect]
     Active Substance: AXITINIB
     Dosage: 8 MG, UNK

REACTIONS (3)
  - Renal impairment [Unknown]
  - Blood creatinine decreased [Unknown]
  - Proteinuria [Unknown]
